FAERS Safety Report 6669515-X (Version None)
Quarter: 2010Q2

REPORT INFORMATION
  Report Type: 
  Country: None (occurrence: None)
  Receive Date: 20100406
  Receipt Date: 20100406
  Transmission Date: 20101027
  Serious: Yes (Hospitalization)
  Sender: FDA-Public Use
  Company Number: PHHO2007NO04325

PATIENT
  Sex: Female
  Weight: 55 kg

DRUGS (8)
  1. ACLASTA/ZOLEDRONATE T29581+A+SOLINJ [Suspect]
     Indication: OSTEOPOROSIS POSTMENOPAUSAL
     Dosage: 5 MG ONCE A YEAR
     Route: 042
     Dates: start: 20050905
  2. ALBYL-E [Suspect]
     Dates: start: 20070104, end: 20070201
  3. CALCIUM [Concomitant]
     Indication: OSTEOPOROSIS POSTMENOPAUSAL
     Dates: start: 20020814
  4. VITAMIN D [Concomitant]
     Indication: OSTEOPOROSIS POSTMENOPAUSAL
     Dates: start: 20020814
  5. COSOPT [Concomitant]
     Dates: start: 19930101
  6. COZAAR [Concomitant]
     Indication: HYPERTENSION
     Dates: start: 20041121
  7. SIMVASTATIN [Concomitant]
     Dates: start: 20070104
  8. SPERSADEX [Concomitant]
     Indication: GLAUCOMA

REACTIONS (4)
  - HAEMATOMA [None]
  - SKIN GRAFT [None]
  - SURGERY [None]
  - WOUND INFECTION [None]
